FAERS Safety Report 16754749 (Version 1)
Quarter: 2019Q3

REPORT INFORMATION
  Report Type: Spontaneous
  Country: US (occurrence: US)
  Receive Date: 20190829
  Receipt Date: 20190829
  Transmission Date: 20191005
  Serious: No
  Sender: FDA-Public Use
  Company Number: US-PFIZER INC-2019368765

PATIENT
  Age: 90 Year
  Sex: Male
  Weight: 90.72 kg

DRUGS (1)
  1. GABAPENTIN. [Suspect]
     Active Substance: GABAPENTIN
     Dosage: UNK

REACTIONS (3)
  - Gait disturbance [Unknown]
  - Confusional state [Unknown]
  - Fatigue [Unknown]
